FAERS Safety Report 23406209 (Version 1)
Quarter: 2024Q1

REPORT INFORMATION
  Report Type: Report from Study
  Country: CA (occurrence: None)
  Receive Date: 20240116
  Receipt Date: 20240116
  Transmission Date: 20240410
  Serious: Yes (Life-Threatening, Other)
  Sender: FDA-Public Use
  Company Number: 2023A265061

PATIENT
  Age: 60 Year
  Sex: Female

DRUGS (3)
  1. IMFINZI [Suspect]
     Active Substance: DURVALUMAB
     Indication: Biliary neoplasm
     Route: 042
     Dates: start: 20230222
  2. PLATINUM [Concomitant]
     Active Substance: PLATINUM
  3. GEMCITABINE [Concomitant]
     Active Substance: GEMCITABINE

REACTIONS (17)
  - Hepatic encephalopathy [Unknown]
  - Fatigue [Not Recovered/Not Resolved]
  - Malignant neoplasm progression [Unknown]
  - Intestinal obstruction [Unknown]
  - Eastern Cooperative Oncology Group performance status worsened [Unknown]
  - Dizziness postural [Not Recovered/Not Resolved]
  - Nausea [Not Recovered/Not Resolved]
  - Eating disorder [Unknown]
  - Epigastric discomfort [Unknown]
  - Malaise [Unknown]
  - Somnolence [Unknown]
  - Weight decreased [Unknown]
  - Taste disorder [Unknown]
  - Decreased appetite [Not Recovered/Not Resolved]
  - Physical deconditioning [Not Recovered/Not Resolved]
  - Asthenia [Unknown]
  - Dizziness [Unknown]

NARRATIVE: CASE EVENT DATE: 20230101
